FAERS Safety Report 6879203-2 (Version None)
Quarter: 2010Q3

REPORT INFORMATION
  Report Type: 
  Country: None (occurrence: None)
  Receive Date: 20100728
  Receipt Date: 20100713
  Transmission Date: 20110219
  Serious: Yes (Hospitalization, Other)
  Sender: FDA-Public Use
  Company Number: PHHY2009JP12976

PATIENT
  Sex: Female
  Weight: 56 kg

DRUGS (41)
  1. ICL670A ICL+DISTAB [Suspect]
     Indication: IRON OVERLOAD
     Dosage: 500 MG DAILY
     Route: 048
     Dates: start: 20080728
  2. ICL670A ICL+DISTAB [Suspect]
     Indication: APLASTIC ANAEMIA
  3. BONZOL [Suspect]
     Indication: APLASTIC ANAEMIA
     Dosage: 400 MG DAILY
     Route: 048
     Dates: start: 20080728, end: 20080810
  4. BONALON [Suspect]
     Indication: PROPHYLAXIS
     Dosage: 35 MG DAILY
     Route: 048
     Dates: start: 20080728, end: 20090127
  5. BONALON [Suspect]
     Dosage: 35 MG DAILY
     Route: 048
     Dates: start: 20090128, end: 20090214
  6. DESFERAL [Concomitant]
     Dosage: 1000 MG
     Route: 030
     Dates: start: 20080428, end: 20080707
  7. ADONA [Concomitant]
     Indication: APLASTIC ANAEMIA
     Dosage: 90MG
     Route: 048
     Dates: start: 20080728, end: 20090127
  8. ADONA [Concomitant]
     Dosage: 90 MG, UNK
     Route: 048
     Dates: start: 20090209, end: 20090304
  9. ADONA [Concomitant]
     Dosage: UNK
     Dates: start: 20090426
  10. ADONA [Concomitant]
     Dosage: UNK
     Route: 048
     Dates: start: 20090615
  11. GLAKAY [Concomitant]
     Indication: PROPHYLAXIS
     Dosage: 45MG
     Route: 048
     Dates: start: 20080728, end: 20090127
  12. GLAKAY [Concomitant]
     Dosage: 45 MG, UNK
     Route: 048
     Dates: end: 20090304
  13. GLYCYRON [Concomitant]
     Indication: PROPHYLAXIS
     Dosage: 150MG
     Route: 048
     Dates: start: 20080728, end: 20090127
  14. GLYCYRON [Concomitant]
     Dosage: 150 MG, UNK
     Route: 048
  15. GLYCYRON [Concomitant]
     Dosage: 150 MG, UNK
     Route: 048
  16. GLYCYRON [Concomitant]
     Dosage: 150 MG, UNK
     Route: 048
     Dates: end: 20090425
  17. PREDONINE [Concomitant]
     Indication: APLASTIC ANAEMIA
     Dosage: 10MG
     Route: 048
     Dates: start: 20080728, end: 20090127
  18. PREDONINE [Concomitant]
     Dosage: 10 MG, UNK
     Route: 048
     Dates: end: 20090208
  19. PREDONINE [Concomitant]
     Dosage: 10 MG, UNK
     Dates: start: 20090209, end: 20090402
  20. GASTER D [Concomitant]
     Indication: PROPHYLAXIS
     Dosage: 20MG
     Route: 048
     Dates: start: 20080728, end: 20090127
  21. GASTER D [Concomitant]
     Dosage: 20 MG, UNK
     Route: 048
     Dates: end: 20090212
  22. CATLEP [Concomitant]
     Dosage: UNK
     Route: 062
     Dates: start: 20080728, end: 20090727
  23. CRAVIT [Concomitant]
     Indication: PROPHYLAXIS
     Dosage: 300MG
     Route: 048
     Dates: start: 20080728, end: 20090127
  24. CRAVIT [Concomitant]
     Dosage: UNK
     Route: 048
     Dates: start: 20090417
  25. BLOOD TRANSFUSION, AUXILIARY PRODUCTS [Concomitant]
     Dosage: UNK
     Dates: end: 20090126
  26. PLATELETS [Concomitant]
  27. MUCOSTA [Concomitant]
     Indication: PROPHYLAXIS
     Dosage: 300 MG, UNK
     Route: 048
     Dates: start: 20090205, end: 20090209
  28. SULPERAZON [Concomitant]
     Dosage: UNK
     Dates: start: 20090323, end: 20090402
  29. OMEPRAL [Concomitant]
     Indication: PROPHYLAXIS
     Dosage: UNK
     Dates: start: 20090209
  30. OMEPRAL [Concomitant]
     Dosage: 20 MG, UNK
     Route: 048
     Dates: start: 20090213, end: 20090727
  31. OMEPRAL [Concomitant]
     Dosage: 40 MG, UNK
     Route: 048
     Dates: start: 20090307, end: 20090402
  32. STRONG NEO-MINOPHAGEN C [Concomitant]
     Dosage: UNK
     Dates: start: 20090226
  33. STRONG NEO-MINOPHAGEN C [Concomitant]
     Dosage: UNK
     Dates: start: 20090410
  34. STRONG NEO-MINOPHAGEN C [Concomitant]
     Dosage: UNK
     Dates: start: 20090419
  35. LAXOBERON [Concomitant]
     Indication: PROPHYLAXIS
     Dosage: UNK
     Route: 048
     Dates: start: 20100213, end: 20100213
  36. MAGNESIUM OXIDE [Concomitant]
     Indication: PROPHYLAXIS
     Dosage: 1.5 G, UNK
     Route: 048
     Dates: start: 20090213, end: 20090222
  37. DAI-KENCHU-TO [Concomitant]
     Dosage: 15 G, UNK
     Route: 048
     Dates: start: 20090213, end: 20090222
  38. POLARAMINE [Concomitant]
     Indication: PROPHYLAXIS
     Dosage: 5 MG, UNK
     Dates: start: 20090211, end: 20090615
  39. VITAMEDIN INTRAVENOUS [Concomitant]
     Indication: PROPHYLAXIS
     Dosage: 1 DF, UNK
     Route: 042
     Dates: start: 20090329, end: 20090405
  40. MINERALIN [Concomitant]
     Indication: PROPHYLAXIS
     Dosage: 2 ML, UNK
     Dates: start: 20090401, end: 20090405
  41. BIOFERMIN R [Concomitant]
     Indication: PROPHYLAXIS
     Dosage: UNK
     Dates: start: 20090426, end: 20090727

REACTIONS (40)
  - ABDOMINAL DISCOMFORT [None]
  - ABDOMINAL PAIN [None]
  - ABDOMINAL PAIN UPPER [None]
  - ABDOMINAL REBOUND TENDERNESS [None]
  - BURSITIS [None]
  - CHOLECYSTITIS [None]
  - ENTERITIS [None]
  - ENTEROCOLITIS [None]
  - ERYTHEMA [None]
  - FUNGAL INFECTION [None]
  - GAMMA-GLUTAMYLTRANSFERASE INCREASED [None]
  - GASTROENTERITIS [None]
  - GINGIVAL BLEEDING [None]
  - GINGIVAL DISORDER [None]
  - HAEMATOCHEZIA [None]
  - HAEMOGLOBIN DECREASED [None]
  - HEPATIC ENZYME INCREASED [None]
  - HYPOKALAEMIA [None]
  - INJECTION SITE ERYTHEMA [None]
  - INJECTION SITE OEDEMA [None]
  - INJECTION SITE PAIN [None]
  - INTESTINAL HAEMORRHAGE [None]
  - JEJUNAL ULCER [None]
  - MALABSORPTION [None]
  - MUSCULOSKELETAL PAIN [None]
  - OEDEMA PERIPHERAL [None]
  - OSTEOMYELITIS [None]
  - PAROXYSMAL NOCTURNAL HAEMOGLOBINURIA [None]
  - PERIARTHRITIS [None]
  - PERITONITIS [None]
  - PHLEBITIS [None]
  - POLLAKIURIA [None]
  - PURPURA [None]
  - PYREXIA [None]
  - RASH [None]
  - RENAL ABSCESS [None]
  - TINEA PEDIS [None]
  - ULCER [None]
  - URINARY TRACT INFECTION [None]
  - URINE ABNORMALITY [None]
